FAERS Safety Report 14235162 (Version 2)
Quarter: 2017Q4

REPORT INFORMATION
  Report Type: Report from Study
  Country: US (occurrence: US)
  Receive Date: 20171129
  Receipt Date: 20171226
  Transmission Date: 20180321
  Serious: No
  Sender: FDA-Public Use
  Company Number: PHEH2017US038438

PATIENT
  Age: 69 Year
  Sex: Female

DRUGS (1)
  1. COSENTYX [Suspect]
     Active Substance: SECUKINUMAB
     Indication: PRODUCT USED FOR UNKNOWN INDICATION
     Dosage: 150 MG, Q2MO
     Route: 065
     Dates: start: 20170825

REACTIONS (2)
  - Inappropriate schedule of drug administration [Unknown]
  - Sinusitis [Unknown]

NARRATIVE: CASE EVENT DATE: 20170825
